FAERS Safety Report 5832755-3 (Version None)
Quarter: 2008Q3

REPORT INFORMATION
  Report Type: 
  Country: None (occurrence: None)
  Receive Date: 20080804
  Receipt Date: 20080731
  Transmission Date: 20090109
  Serious: Yes (Death)
  Sender: FDA-Public Use
  Company Number: PHHY2008CH16145

PATIENT
  Sex: Male

DRUGS (3)
  1. TEGRETOL [Suspect]
     Dosage: MOTHER DOSE-800MG/DAY
     Route: 064
  2. RIVOTRIL [Suspect]
     Dosage: MOTHER DOSE 2MG/DAY
  3. FOLIC ACID [Concomitant]
     Dosage: MOTHER DOSE 8 MG/ DAY
     Dates: start: 20070420

REACTIONS (2)
  - DRUG EXPOSURE DURING PREGNANCY [None]
  - SUDDEN INFANT DEATH SYNDROME [None]
